FAERS Safety Report 24211558 (Version 1)
Quarter: 2024Q3

REPORT INFORMATION
  Report Type: Spontaneous
  Country: EU (occurrence: EU)
  Receive Date: 20240814
  Receipt Date: 20240814
  Transmission Date: 20241016
  Serious: Yes (Other)
  Sender: Harrow Health
  Company Number: EU-Santen Inc-2024-ESP-007810

PATIENT

DRUGS (1)
  1. CYCLOSPORINE [Suspect]
     Active Substance: CYCLOSPORINE
     Indication: Dry eye
     Dosage: FOR LONG TIME, ONGOING
     Route: 047

REACTIONS (1)
  - Leukaemia [Unknown]
